FAERS Safety Report 4873810-4 (Version None)
Quarter: 2006Q1

REPORT INFORMATION
  Report Type: 
  Country: None (occurrence: None)
  Receive Date: 20060104
  Receipt Date: 20051220
  Transmission Date: 20060701
  Serious: Yes (Other)
  Sender: FDA-Public Use
  Company Number: 220541

PATIENT
  Age: 66 Year
  Sex: Female
  Weight: 180 kg

DRUGS (1)
  1. AVASTIN [Suspect]
     Indication: MACULAR DEGENERATION
     Dosage: 1.25 MG, INTRAVITREAL
     Dates: start: 20050803

REACTIONS (2)
  - EPISCLERITIS [None]
  - IRITIS [None]
